FAERS Safety Report 9331852 (Version 2)
Quarter: 2013Q2

REPORT INFORMATION
  Report Type: Spontaneous
  Country: FR (occurrence: None)
  Receive Date: 20130603
  Receipt Date: 20130612
  Transmission Date: 20140414
  Serious: Yes (Death, Hospitalization)
  Sender: FDA-Public Use
  Company Number: 2013STPI000199

PATIENT
  Age: 18 Year
  Sex: Female

DRUGS (1)
  1. ADAGEN [Suspect]
     Indication: COMBINED IMMUNODEFICIENCY
     Route: 030
     Dates: start: 19950623, end: 1999

REACTIONS (6)
  - Epstein-Barr virus associated lymphoma [None]
  - No therapeutic response [None]
  - Respiratory failure [None]
  - Multi-organ failure [None]
  - Alveolitis [None]
  - Haemorrhage [None]
